FAERS Safety Report 5279321-9 (Version None)
Quarter: 2007Q1

REPORT INFORMATION
  Report Type: 
  Country: None (occurrence: None)
  Receive Date: 20070328
  Receipt Date: 20060403
  Transmission Date: 20070707
  Serious: No
  Sender: FDA-Public Use
  Company Number: US-AMGEN-US174876

PATIENT
  Sex: Female

DRUGS (7)
  1. NEULASTA [Suspect]
     Indication: CHEMOTHERAPY
     Route: 058
     Dates: start: 20060331
  2. DOXORUBICIN HYDROCHLORIDE [Concomitant]
     Route: 065
  3. CYCLOPHOSPHAMIDE [Concomitant]
     Route: 065
  4. VITAMINS [Concomitant]
     Route: 065
  5. BENADRYL [Concomitant]
     Route: 065
  6. COMPAZINE [Concomitant]
     Route: 065
  7. ZOFRAN [Concomitant]
     Route: 065

REACTIONS (1)
  - DYSPNOEA [None]
